FAERS Safety Report 18453125 (Version 2)
Quarter: 2022Q2

REPORT INFORMATION
  Report Type: Spontaneous
  Country: FR (occurrence: FR)
  Receive Date: 20201102
  Receipt Date: 20220406
  Transmission Date: 20220721
  Serious: Yes (Hospitalization)
  Sender: FDA-Public Use
  Company Number: None

PATIENT
  Age: 73 Year
  Sex: Female
  Weight: 103 kg

DRUGS (11)
  1. DAPTOMYCIN [Suspect]
     Active Substance: DAPTOMYCIN
     Indication: Infection
     Dosage: 800 MILLIGRAM, ONCE
     Route: 042
     Dates: start: 20200819, end: 20200819
  2. RIFAMPIN [Suspect]
     Active Substance: RIFAMPIN
     Indication: Infection
     Dosage: 900 MILLIGRAM, DAILY, IN THE MORNING ON AN EMPTY STOMACH
     Route: 048
     Dates: start: 20200827, end: 20200921
  3. TAZOBACTAM [Suspect]
     Active Substance: TAZOBACTAM
     Indication: Infection
     Dosage: 500 MILLIGRAM, EVERY 6 HOURS
     Route: 042
     Dates: start: 20200819, end: 20200921
  4. TAZOBACTAM [Suspect]
     Active Substance: TAZOBACTAM
     Dosage: 500 MILLIGRAM, Q6H
     Route: 042
     Dates: start: 20200820, end: 20200901
  5. PIPERACILLIN [Suspect]
     Active Substance: PIPERACILLIN
     Indication: Infection
     Dosage: 4 GRAM, EVERY 6 HOURS
     Route: 042
     Dates: start: 20200819, end: 20200921
  6. PIPERACILLIN [Suspect]
     Active Substance: PIPERACILLIN
     Dosage: 4 GRAM, EVERY 6 HOURS
     Route: 042
     Dates: start: 20200820, end: 20200901
  7. PIPERACILLIN [Suspect]
     Active Substance: PIPERACILLIN
     Dosage: 16 GRAM, Q24H
     Route: 042
     Dates: start: 20200901, end: 20200907
  8. OXYCONTIN [Concomitant]
     Active Substance: OXYCODONE HYDROCHLORIDE
     Dosage: UNK
     Dates: start: 20200907, end: 20200921
  9. LANSOPRAZOLE [Concomitant]
     Active Substance: LANSOPRAZOLE
     Indication: Prophylaxis against gastrointestinal ulcer
     Dosage: 15 MILLIGRAM, QD
     Route: 048
     Dates: start: 20200907, end: 20201002
  10. OXYCODONE HYDROCHLORIDE [Concomitant]
     Active Substance: OXYCODONE HYDROCHLORIDE
     Dosage: UNK
     Dates: start: 20200907, end: 20200921
  11. SERTRALINE HYDROCHLORIDE [Concomitant]
     Active Substance: SERTRALINE HYDROCHLORIDE
     Dosage: UNK

REACTIONS (4)
  - Liver injury [Not Recovered/Not Resolved]
  - Dermatitis exfoliative generalised [Recovered/Resolved]
  - Eosinophilia [Not Recovered/Not Resolved]
  - Pruritus [Recovering/Resolving]

NARRATIVE: CASE EVENT DATE: 20200915
